FAERS Safety Report 21576914 (Version 7)
Quarter: 2024Q4

REPORT INFORMATION
  Report Type: Report from Study
  Country: US (occurrence: US)
  Receive Date: 20221110
  Receipt Date: 20241015
  Transmission Date: 20250114
  Serious: No
  Sender: NOVARTIS
  Company Number: US-002147023-NVSC2022US251439

PATIENT
  Sex: Female

DRUGS (1)
  1. COSENTYX [Suspect]
     Active Substance: SECUKINUMAB
     Indication: Psoriatic arthropathy
     Dosage: 300 MG, QMO
     Route: 058

REACTIONS (8)
  - Mouth ulceration [Unknown]
  - Lymphadenopathy [Unknown]
  - Blister [Unknown]
  - Oropharyngeal pain [Unknown]
  - Illness [Unknown]
  - Sinusitis [Unknown]
  - Rhinorrhoea [Unknown]
  - Pharyngeal swelling [Unknown]
